FAERS Safety Report 23505773 (Version 1)
Quarter: 2024Q1

REPORT INFORMATION
  Report Type: Spontaneous
  Country: US (occurrence: US)
  Receive Date: 20240209
  Receipt Date: 20240209
  Transmission Date: 20240410
  Serious: Yes (Hospitalization, Other)
  Sender: FDA-Public Use
  Company Number: US-STRIDES ARCOLAB LIMITED-2024SP001285

PATIENT

DRUGS (6)
  1. CALCITRIOL [Suspect]
     Active Substance: CALCITRIOL
     Indication: Product used for unknown indication
     Dosage: UNK (BASELINE) (PATIENT MOTHER RECEIVED DURING PREGNANCY)
     Route: 064
  2. CALCITRIOL [Suspect]
     Active Substance: CALCITRIOL
     Dosage: UNK (PATIENT^S MOTHER^S REQUIREMENT OF CALCITRIOL HAD INCREASED THREE TIMES DURING SECOND TRIMESTER)
     Route: 064
  3. CALCITRIOL [Suspect]
     Active Substance: CALCITRIOL
     Dosage: UNK (PATIENT^S MOTHER^S REQUIREMENT OF CALCITRIOL DECLINED BY 50%. DURING THIRD TRIMESTER)
     Route: 064
  4. CALCIUM [Suspect]
     Active Substance: CALCIUM
     Indication: Product used for unknown indication
     Dosage: UNK (BASELINE) (PATIENT MOTHER RECEIVED DURING PREGNANCY)
     Route: 064
  5. CALCIUM [Suspect]
     Active Substance: CALCIUM
     Dosage: UNK (PATIENT^S MOTHER^S REQUIREMENT OF CALCIUM HAD INCREASED THREE TIMES)
     Route: 064
  6. CALCIUM [Suspect]
     Active Substance: CALCIUM
     Dosage: UNK (PATIENT^S MOTHER^S CALCIUM REQUIREMENT DECLINED TO BASELINE DURING THIRD TRIMESTER)
     Route: 064

REACTIONS (2)
  - Neonatal hypocalcaemia [Unknown]
  - Foetal exposure during pregnancy [Unknown]
